FAERS Safety Report 11334683 (Version 2)
Quarter: 2015Q3

REPORT INFORMATION
  Report Type: Report from Study
  Country: JP (occurrence: JP)
  Receive Date: 20150804
  Receipt Date: 20150812
  Transmission Date: 20151125
  Serious: Yes (Hospitalization, Other)
  Sender: FDA-Public Use
  Company Number: JP-TAKEDA-2015TJP013933

PATIENT
  Age: 40 Year
  Sex: Male
  Weight: 93.5 kg

DRUGS (18)
  1. PENTASA [Concomitant]
     Active Substance: MESALAMINE
     Dosage: 1000 MG, TID
     Route: 048
     Dates: start: 20150727
  2. BIOFERMIN                          /01617201/ [Concomitant]
     Active Substance: BACILLUS SUBTILIS\LACTOBACILLUS ACIDOPHILUS\STREPTOCOCCUS FAECAIS
     Dosage: 1 G, TID
     Route: 048
     Dates: start: 20150727
  3. BLINDED VEDOLIZUMAB [Suspect]
     Active Substance: VEDOLIZUMAB
     Dosage: MLN0002 300MG OR PLACEBO
     Route: 041
     Dates: start: 20150227, end: 20150410
  4. THIATON [Concomitant]
     Active Substance: TIQUIZIUM BROMIDE
     Dosage: 10 G, TID
     Route: 048
     Dates: start: 20150727
  5. PLACEBO [Suspect]
     Active Substance: UNSPECIFIED INGREDIENT
     Indication: CROHN^S DISEASE
     Dosage: MLN0002 300MG OR PLACEBO, UNKNOWN
     Route: 041
     Dates: start: 20150227, end: 20150410
  6. BLINDED VEDOLIZUMAB [Suspect]
     Active Substance: VEDOLIZUMAB
     Indication: CROHN^S DISEASE
     Dosage: MLN0002 300MG OR PLACEBO, UNKNOWN
     Route: 041
     Dates: start: 20150227, end: 20150410
  7. PLACEBO [Suspect]
     Active Substance: UNSPECIFIED INGREDIENT
     Dosage: UNKNOWN
     Route: 041
     Dates: start: 20150612
  8. ELENTAL [Concomitant]
     Active Substance: MINERALS\VITAMINS
     Dosage: 80 G, TID
     Route: 048
     Dates: start: 20150729
  9. PELTAZON                           /00052101/ [Concomitant]
     Indication: CROHN^S DISEASE
     Dosage: 25 MG, UNK
     Route: 048
     Dates: end: 20150726
  10. PLACEBO [Suspect]
     Active Substance: UNSPECIFIED INGREDIENT
     Dosage: MLN0002 300MG OR PLACEBO
     Route: 041
     Dates: start: 20150227, end: 20150410
  11. BIOFERMIN                          /01617201/ [Concomitant]
     Active Substance: BACILLUS SUBTILIS\LACTOBACILLUS ACIDOPHILUS\STREPTOCOCCUS FAECAIS
     Indication: CROHN^S DISEASE
     Dosage: 1 G, TID
     Route: 048
     Dates: end: 20150726
  12. VOLTAREN [Concomitant]
     Active Substance: DICLOFENAC SODIUM
     Indication: CROHN^S DISEASE
     Dosage: 50 MG, UNK
     Route: 054
     Dates: start: 20150405, end: 20150726
  13. BLINDED VEDOLIZUMAB [Suspect]
     Active Substance: VEDOLIZUMAB
     Dosage: UNKNOWN
     Route: 041
     Dates: start: 20150612
  14. PENTASA [Concomitant]
     Active Substance: MESALAMINE
     Indication: CROHN^S DISEASE
     Dosage: 1000 MG, TID
     Route: 048
     Dates: end: 20150726
  15. URSODEOXYCHOLIC ACID [Concomitant]
     Active Substance: URSODIOL
     Dosage: 200 MG, TID
     Route: 048
     Dates: start: 20150727
  16. ELENTAL [Concomitant]
     Active Substance: MINERALS\VITAMINS
     Indication: CROHN^S DISEASE
     Dosage: 80 G, TID
     Route: 048
     Dates: end: 20150726
  17. THIATON [Concomitant]
     Active Substance: TIQUIZIUM BROMIDE
     Indication: CHOLELITHIASIS
     Dosage: 10 G, TID
     Route: 048
     Dates: end: 20150726
  18. URSODEOXYCHOLIC ACID [Concomitant]
     Active Substance: URSODIOL
     Indication: CHOLELITHIASIS
     Dosage: 200 MG, TID
     Route: 048
     Dates: end: 20150726

REACTIONS (1)
  - Ileus [Recovering/Resolving]

NARRATIVE: CASE EVENT DATE: 20150722
